FAERS Safety Report 8797790 (Version 4)
Quarter: 2012Q4

REPORT INFORMATION
  Report Type: 
  Country: JP (occurrence: JP)
  Receive Date: 20120920
  Receipt Date: 20121228
  Transmission Date: 20130627
  Serious: Yes (Other)
  Sender: FDA-Public Use
  Company Number: JP-SP-2012-08709

PATIENT
  Age: 68 Year
  Sex: Female
  Weight: 55 kg

DRUGS (1)
  1. IMMUCYST [Suspect]
     Indication: BLADDER CANCER
     Route: 043
     Dates: start: 20110511, end: 20120425

REACTIONS (11)
  - Tuberculosis [Unknown]
  - Spondylitis [Recovering/Resolving]
  - Myelitis [Unknown]
  - Bone lesion [Unknown]
  - Pyrexia [Unknown]
  - Influenza like illness [Unknown]
  - Oedema peripheral [Recovered/Resolved]
  - Back pain [Recovered/Resolved]
  - Pain in extremity [Recovered/Resolved]
  - Gait disturbance [Recovered/Resolved]
  - Intervertebral disc disorder [Recovered/Resolved]
